FAERS Safety Report 17654669 (Version 1)
Quarter: 2020Q2

REPORT INFORMATION
  Report Type: Spontaneous
  Country: DE (occurrence: DE)
  Receive Date: 20200410
  Receipt Date: 20200410
  Transmission Date: 20200713
  Serious: Yes (Hospitalization)
  Sender: FDA-Public Use
  Company Number: DE-TEVA-2020-DE-1221695

PATIENT
  Age: 57 Year
  Sex: Female

DRUGS (1)
  1. CISPLATIN. [Suspect]
     Active Substance: CISPLATIN
     Dosage: 1XWEEK
     Route: 065

REACTIONS (4)
  - Tremor [Unknown]
  - Syncope [Unknown]
  - Aphasia [Unknown]
  - Asthenia [Unknown]
